FAERS Safety Report 13759436 (Version 3)
Quarter: 2018Q3

REPORT INFORMATION
  Report Type: Spontaneous
  Country: CA (occurrence: CA)
  Receive Date: 20170717
  Receipt Date: 20180903
  Transmission Date: 20181010
  Serious: Yes (Hospitalization, Other)
  Sender: FDA-Public Use
  Company Number: CA-BAUSCH-BL-2017-021333

PATIENT
  Age: 13 Year
  Sex: Male

DRUGS (1)
  1. DOXYCYCLINE. [Suspect]
     Active Substance: DOXYCYCLINE
     Indication: ACNE CONGLOBATA
     Dosage: 12 HOURS
     Route: 048

REACTIONS (2)
  - Condition aggravated [Recovering/Resolving]
  - Neutrophilic dermatosis [Recovering/Resolving]
